FAERS Safety Report 5338858-4 (Version None)
Quarter: 2007Q2

REPORT INFORMATION
  Report Type: 
  Country: None (occurrence: None)
  Receive Date: 20070530
  Receipt Date: 20070521
  Transmission Date: 20071010
  Serious: Yes (Other)
  Sender: FDA-Public Use
  Company Number: SE-ELI_LILLY_AND_COMPANY-SE200705004015

PATIENT
  Age: 59 Year
  Sex: Female

DRUGS (5)
  1. FONTEX [Suspect]
     Indication: DEPRESSION
     Dosage: 20 MG, 2/D (3/D IF NEEDED)
     Dates: start: 19990101, end: 20070513
  2. BUSPAR [Concomitant]
     Indication: ANXIETY
  3. ZOLPIDEM TARTRATE [Concomitant]
     Indication: INSOMNIA
  4. ORUDIS [Concomitant]
     Indication: PAIN
  5. ALVEDON [Concomitant]
     Indication: PAIN

REACTIONS (19)
  - ABDOMINAL PAIN UPPER [None]
  - ABNORMAL DREAMS [None]
  - BREAST CANCER [None]
  - BREAST MASS [None]
  - DECREASED APPETITE [None]
  - DIARRHOEA [None]
  - DIZZINESS [None]
  - DYSGEUSIA [None]
  - EYE DISORDER [None]
  - FATIGUE [None]
  - GASTROINTESTINAL DISORDER [None]
  - HEPATIC CYST [None]
  - HYPERHIDROSIS [None]
  - MUSCLE TWITCHING [None]
  - SKIN HAEMORRHAGE [None]
  - SOMNOLENCE [None]
  - SWOLLEN TONGUE [None]
  - VISION BLURRED [None]
  - VOMITING [None]
